FAERS Safety Report 4466714-2 (Version None)
Quarter: 2004Q4

REPORT INFORMATION
  Report Type: 
  Country: None (occurrence: None)
  Receive Date: 20041001
  Receipt Date: 20041001
  Transmission Date: 20050328
  Serious: Yes (Hospitalization)
  Sender: FDA-Public Use
  Company Number: None

PATIENT
  Age: 49 Year
  Sex: Male
  Weight: 104.3273 kg

DRUGS (1)
  1. VIOXX [Suspect]
     Dosage: 1 DAILY ORAL
     Route: 048

REACTIONS (1)
  - MYOCARDIAL INFARCTION [None]
